FAERS Safety Report 9813616 (Version 1)
Quarter: 2014Q1

REPORT INFORMATION
  Report Type: Spontaneous
  Country: US (occurrence: US)
  Receive Date: 20140113
  Receipt Date: 20140113
  Transmission Date: 20141002
  Serious: No
  Sender: FDA-Public Use
  Company Number: US-TARO-2013P1001612

PATIENT
  Age: 72 Year
  Sex: Female

DRUGS (7)
  1. AMIODARONE HCL TABLET 400 MG [Suspect]
     Route: 048
     Dates: start: 20130116
  2. GABAPENTIN [Concomitant]
  3. NAPROXEN DR [Concomitant]
  4. PAROXETINE [Concomitant]
  5. SIMVASTATIN [Concomitant]
  6. HCTZ [Concomitant]
  7. CIPROFLOXACIN [Concomitant]
     Dates: start: 20130116

REACTIONS (1)
  - Intraocular pressure increased [Not Recovered/Not Resolved]
